FAERS Safety Report 10098372 (Version 1)
Quarter: 2014Q2

REPORT INFORMATION
  Report Type: Spontaneous
  Country: US (occurrence: US)
  Receive Date: 20140423
  Receipt Date: 20140423
  Transmission Date: 20141212
  Serious: No
  Sender: FDA-Public Use
  Company Number: US-PFIZER INC-2014108792

PATIENT
  Age: 41 Year
  Sex: Female

DRUGS (2)
  1. ENBREL [Suspect]
     Dosage: 50 MG, WEEKLY
     Dates: start: 20140210
  2. DIFLUCAN [Suspect]
     Indication: FUNGAL INFECTION
     Dosage: UNK
     Dates: start: 201404

REACTIONS (2)
  - Fungal infection [Not Recovered/Not Resolved]
  - Drug ineffective [Unknown]
